FAERS Safety Report 8513370-X (Version None)
Quarter: 2012Q3

REPORT INFORMATION
  Report Type: 
  Country: None (occurrence: None)
  Receive Date: 20120716
  Receipt Date: 20120706
  Transmission Date: 20120928
  Serious: Yes (Other)
  Sender: FDA-Public Use
  Company Number: US-ASTRAZENECA-2012SE39080

PATIENT
  Age: 59 Year
  Sex: Female

DRUGS (2)
  1. FASLODEX [Suspect]
     Route: 030
  2. CHEMOTHERAPY [Suspect]
     Route: 065

REACTIONS (5)
  - ALOPECIA [None]
  - BREAST CANCER FEMALE [None]
  - METASTASES TO LIVER [None]
  - CHEST PAIN [None]
  - DRUG INEFFECTIVE [None]
